FAERS Safety Report 9634732 (Version 1)
Quarter: 2013Q4

REPORT INFORMATION
  Report Type: Spontaneous
  Country: US (occurrence: US)
  Receive Date: 20131021
  Receipt Date: 20131021
  Transmission Date: 20140711
  Serious: No
  Sender: FDA-Public Use
  Company Number: US-PURDUE-USA-2013-0101262

PATIENT
  Sex: Male

DRUGS (3)
  1. BUTRANS [Suspect]
     Indication: PAIN
     Dosage: 20 MCG/HR, UNK
     Route: 062
  2. BUTRANS [Suspect]
     Dosage: 5 MCG/HR, UNK
     Route: 062
  3. MORPHINE SULFATE (SIMILAR TO NDA 19-516) [Concomitant]
     Indication: PAIN
     Route: 065

REACTIONS (5)
  - Blister [Recovered/Resolved]
  - Inadequate analgesia [Not Recovered/Not Resolved]
  - Nausea [Recovered/Resolved]
  - Migraine [Not Recovered/Not Resolved]
  - Back pain [Not Recovered/Not Resolved]
